FAERS Safety Report 10017766 (Version 2)
Quarter: 2014Q1

REPORT INFORMATION
  Report Type: Spontaneous
  Country: US (occurrence: US)
  Receive Date: 20140318
  Receipt Date: 20140318
  Transmission Date: 20141002
  Serious: Yes (Other)
  Sender: FDA-Public Use
  Company Number: US-BRISTOL-MYERS SQUIBB COMPANY-18832030

PATIENT
  Sex: 0

DRUGS (4)
  1. ERBITUX [Suspect]
     Indication: COLORECTAL CANCER METASTATIC
     Dosage: INTERRUPTED ON 14-MAY-2013.
     Dates: start: 20130319
  2. FOLINIC ACID [Concomitant]
  3. 5-FLUOROURACIL [Concomitant]
  4. IRINOTECAN [Concomitant]

REACTIONS (1)
  - Rash [Recovered/Resolved with Sequelae]
